FAERS Safety Report 5114004-7 (Version None)
Quarter: 2006Q3

REPORT INFORMATION
  Report Type: 
  Country: None (occurrence: None)
  Receive Date: 20060925
  Receipt Date: 20060918
  Transmission Date: 20061208
  Serious: Yes (Hospitalization)
  Sender: FDA-Public Use
  Company Number: 2006CG01517

PATIENT
  Age: 61 Year
  Sex: Female
  Weight: 74 kg

DRUGS (16)
  1. ARIMIDEX [Suspect]
     Indication: BREAST CANCER
     Route: 048
     Dates: start: 20050722
  2. NEXEN [Suspect]
     Route: 048
     Dates: start: 20051101
  3. EUPANTOL [Suspect]
     Route: 048
     Dates: start: 20050701
  4. BIPROFENID [Suspect]
     Route: 048
     Dates: start: 20051101
  5. BREXIN [Suspect]
     Route: 048
     Dates: start: 20051101
  6. TAMOXIFEN CITRATE [Concomitant]
     Indication: BREAST CANCER
     Dates: start: 20030101, end: 20050721
  7. FENOFIBRATE [Concomitant]
     Indication: HYPERCHOLESTEROLAEMIA
     Dates: start: 20050701
  8. ABUFENE [Concomitant]
     Dates: start: 20050701
  9. LEVOTHYROXINE SODIUM [Concomitant]
     Dates: start: 20050701
  10. DAFALGAN [Concomitant]
     Dates: start: 20051101
  11. SPASFON [Concomitant]
     Dates: start: 20051101
  12. ARESTAL [Concomitant]
     Dates: start: 20051101
  13. ERCEFURYL [Concomitant]
     Dates: start: 20051101
  14. TIORFAN [Concomitant]
     Dates: start: 20051101
  15. LOPERAMIDE [Concomitant]
     Dates: start: 20051101
  16. DICETEL [Concomitant]
     Dates: start: 20051101

REACTIONS (1)
  - COLITIS COLLAGENOUS [None]
